FAERS Safety Report 4957720-X (Version None)
Quarter: 2006Q1

REPORT INFORMATION
  Report Type: 
  Country: None (occurrence: None)
  Receive Date: 20060324
  Receipt Date: 20060313
  Transmission Date: 20060701
  Serious: Yes (Hospitalization)
  Sender: FDA-Public Use
  Company Number: 2006-138015-NL

PATIENT
  Age: 35 Year
  Sex: Female

DRUGS (1)
  1. NUVARING [Suspect]
     Dosage: DF
     Dates: start: 20051004, end: 20060101

REACTIONS (1)
  - MYOCARDIAL INFARCTION [None]
